FAERS Safety Report 16579117 (Version 1)
Quarter: 2019Q3

REPORT INFORMATION
  Report Type: Report from Study
  Country: US (occurrence: US)
  Receive Date: 20190716
  Receipt Date: 20190716
  Transmission Date: 20191004
  Serious: Yes (Other)
  Sender: FDA-Public Use
  Company Number: US-CURIUM-200300190

PATIENT
  Age: 41 Year
  Sex: Female

DRUGS (1)
  1. SODIUM IODIDE I 131 [Suspect]
     Active Substance: SODIUM IODIDE I-131
     Indication: PAPILLARY THYROID CANCER
     Dosage: 5550 MBQ
     Route: 065
     Dates: start: 199908, end: 199908

REACTIONS (3)
  - Lacrimation increased [Unknown]
  - Dacryostenosis acquired [Unknown]
  - Lacrimal disorder [Unknown]
